FAERS Safety Report 7645557-2 (Version None)
Quarter: 2011Q3

REPORT INFORMATION
  Report Type: 
  Country: None (occurrence: None)
  Receive Date: 20110729
  Receipt Date: 20110719
  Transmission Date: 20111222
  Serious: Yes (Disabling, Other)
  Sender: FDA-Public Use
  Company Number: US-ROCHE-761475

PATIENT
  Sex: Female
  Weight: 49.9 kg

DRUGS (3)
  1. ACCUTANE [Suspect]
     Route: 065
     Dates: end: 20001201
  2. ACCUTANE [Suspect]
     Route: 065
     Dates: start: 20000701, end: 20001107
  3. ACCUTANE [Suspect]
     Indication: ACNE
     Route: 065
     Dates: start: 20000624

REACTIONS (7)
  - DEPRESSION [None]
  - COLITIS ULCERATIVE [None]
  - ABDOMINAL PAIN [None]
  - INFLAMMATORY BOWEL DISEASE [None]
  - RECTAL HAEMORRHAGE [None]
  - COLONIC POLYP [None]
  - CROHN'S DISEASE [None]
